FAERS Safety Report 6342927-X (Version None)
Quarter: 2009Q3

REPORT INFORMATION
  Report Type: 
  Country: None (occurrence: None)
  Receive Date: 20090908
  Receipt Date: 20090826
  Transmission Date: 20100115
  Serious: Yes (Other)
  Sender: FDA-Public Use
  Company Number: US-KINGPHARMUSA00001-K200901069

PATIENT
  Sex: Male

DRUGS (1)
  1. PENICILLIN G PROCAINE [Suspect]

REACTIONS (1)
  - STEVENS-JOHNSON SYNDROME [None]
